FAERS Safety Report 8967849 (Version 1)
Quarter: 2012Q4

REPORT INFORMATION
  Report Type: 
  Country: US (occurrence: US)
  Receive Date: 20121217
  Receipt Date: 20121217
  Transmission Date: 20130627
  Serious: Yes (Hospitalization)
  Sender: FDA-Public Use
  Company Number: US-BAYER-2012-129917

PATIENT
  Age: 44 Year
  Sex: Female
  Weight: 78.91 kg

DRUGS (2)
  1. YASMIN [Suspect]
     Dosage: UNK;daily
  2. EFFEXOR [Concomitant]
     Dosage: 75 mg, UNK

REACTIONS (1)
  - Deep vein thrombosis [None]
